FAERS Safety Report 6032025-7 (Version None)
Quarter: 2009Q1

REPORT INFORMATION
  Report Type: 
  Country: None (occurrence: None)
  Receive Date: 20090108
  Receipt Date: 20090102
  Transmission Date: 20090719
  Serious: Yes (Other)
  Sender: FDA-Public Use
  Company Number: PHHY2008AT24253

PATIENT
  Sex: Female

DRUGS (2)
  1. GLEEVEC [Suspect]
     Indication: CHRONIC MYELOID LEUKAEMIA
     Dosage: MULTIPLE DOSAGE OF 200 MG
     Dates: start: 20030607, end: 20060101
  2. GLEEVEC [Suspect]
     Dosage: 600MG DAILY

REACTIONS (16)
  - ARTHRALGIA [None]
  - BLOOD LACTATE DEHYDROGENASE INCREASED [None]
  - BONE PAIN [None]
  - CHOLELITHIASIS [None]
  - DENTAL IMPLANTATION [None]
  - ERUCTATION [None]
  - GASTROINTESTINAL DISORDER [None]
  - HAEMATOCRIT DECREASED [None]
  - INTERVERTEBRAL DISC DEGENERATION [None]
  - NAUSEA [None]
  - OSTEOCHONDROSIS [None]
  - PLATELET COUNT INCREASED [None]
  - RED BLOOD CELL ABNORMALITY [None]
  - SPINAL COMPRESSION FRACTURE [None]
  - SPINAL FRACTURE [None]
  - WHITE BLOOD CELL DISORDER [None]
